FAERS Safety Report 7757686-3 (Version None)
Quarter: 2011Q3

REPORT INFORMATION
  Report Type: 
  Country: None (occurrence: None)
  Receive Date: 20110916
  Receipt Date: 20110909
  Transmission Date: 20111222
  Serious: Yes (Other)
  Sender: FDA-Public Use
  Company Number: US-US-EMD SERONO, INC.-7068719

PATIENT
  Sex: Female

DRUGS (3)
  1. AMPYRA [Concomitant]
     Indication: GAIT DISTURBANCE
  2. REBIF [Suspect]
     Indication: MULTIPLE SCLEROSIS
     Dates: start: 20040101, end: 20060101
  3. REBIF [Suspect]
     Route: 058
     Dates: start: 20070515, end: 20110401

REACTIONS (3)
  - CARPAL TUNNEL SYNDROME [None]
  - ARTHRITIS [None]
  - TREMOR [None]
